FAERS Safety Report 22317903 (Version 1)
Quarter: 2023Q2

REPORT INFORMATION
  Report Type: Spontaneous
  Country: US (occurrence: US)
  Receive Date: 20230515
  Receipt Date: 20230515
  Transmission Date: 20230721
  Serious: No
  Sender: FDA-Public Use
  Company Number: US-Accord-302823

PATIENT
  Sex: Female
  Weight: 53.98 kg

DRUGS (1)
  1. LEVOTHYROXINE [Suspect]
     Active Substance: LEVOTHYROXINE
     Indication: Hypothyroidism
     Dosage: ONCE DAY
     Route: 048

REACTIONS (4)
  - Blood pressure increased [Recovered/Resolved]
  - Malaise [Unknown]
  - Product substitution issue [Unknown]
  - Product dose omission issue [Unknown]
